FAERS Safety Report 4424932-3 (Version None)
Quarter: 2004Q3

REPORT INFORMATION
  Report Type: 
  Country: None (occurrence: None)
  Receive Date: 20040809
  Receipt Date: 20040726
  Transmission Date: 20050211
  Serious: Yes (Hospitalization)
  Sender: FDA-Public Use
  Company Number: US-JNJFOC-20040707036

PATIENT
  Age: 73 Year
  Sex: Female

DRUGS (15)
  1. INFLIXIMAB LYOPHILIZED POWDER (INFLIXIMAB, RECOMBINANT) [Suspect]
     Indication: RHEUMATOID ARTHRITIS
     Dosage: INTRAVENOUS
     Route: 042
     Dates: start: 20010715
  2. ALBUTEROL [Concomitant]
  3. PREDNISONE [Concomitant]
  4. FOSAMAX [Concomitant]
  5. NORMODYNE [Concomitant]
  6. ASPIRIN [Concomitant]
  7. FOLIC ACID [Concomitant]
  8. FUROSEMIDE [Concomitant]
  9. LISINOPRIL [Concomitant]
  10. ISOSORBIDE [Concomitant]
  11. METHOTREXATE [Concomitant]
  12. POTASSIUM [Concomitant]
  13. CALCIUM [Concomitant]
  14. IRON SUPPLEMENT (IRON) [Concomitant]
  15. MULTI-VITAMINS [Concomitant]

REACTIONS (1)
  - HOSPITALISATION [None]
